FAERS Safety Report 14049837 (Version 1)
Quarter: 2017Q4

REPORT INFORMATION
  Report Type: Spontaneous
  Country: FR (occurrence: FR)
  Receive Date: 20171005
  Receipt Date: 20171005
  Transmission Date: 20180321
  Serious: Yes (Hospitalization)
  Sender: FDA-Public Use
  Company Number: FR-PFIZER INC-2017425545

PATIENT
  Age: 61 Year
  Sex: Female

DRUGS (7)
  1. HUMALOG [Concomitant]
     Active Substance: INSULIN LISPRO
  2. PANTOPRAZOLE [Concomitant]
     Active Substance: PANTOPRAZOLE
     Dosage: 40 MG, DAILY
  3. ZYPREXA [Concomitant]
     Active Substance: OLANZAPINE
     Dosage: 5 MG, DAILY
  4. MERONEM [Suspect]
     Active Substance: MEROPENEM
     Indication: DEVICE RELATED INFECTION
     Dosage: 2 G, DAILY
     Route: 042
     Dates: start: 20170727, end: 20170818
  5. ABASAGLAR [Concomitant]
     Active Substance: INSULIN GLARGINE
  6. OFLOCET /00731801/ [Suspect]
     Active Substance: OFLOXACIN
     Indication: DEVICE RELATED INFECTION
     Dosage: 200 MG, DAILY
     Route: 042
     Dates: start: 20170711, end: 20170818
  7. CUBICIN [Suspect]
     Active Substance: DAPTOMYCIN
     Indication: DEVICE RELATED INFECTION
     Dosage: 700 MG, ALTERNATE DAY
     Route: 042
     Dates: start: 20170602, end: 20170818

REACTIONS (4)
  - Drug reaction with eosinophilia and systemic symptoms [Recovering/Resolving]
  - Eosinophilia [Not Recovered/Not Resolved]
  - Rash maculo-papular [Recovering/Resolving]
  - Eosinophilic pneumonia [Recovered/Resolved]

NARRATIVE: CASE EVENT DATE: 20170817
